FAERS Safety Report 22041216 (Version 1)
Quarter: 2023Q1

REPORT INFORMATION
  Report Type: Report from Study
  Country: US (occurrence: US)
  Receive Date: 20230227
  Receipt Date: 20230227
  Transmission Date: 20230417
  Serious: Yes (Other)
  Sender: FDA-Public Use
  Company Number: US-002147023-NVSC2023US039964

PATIENT
  Age: 74 Year
  Sex: Female

DRUGS (1)
  1. LEQVIO [Suspect]
     Active Substance: INCLISIRAN SODIUM
     Indication: Product used for unknown indication
     Dosage: 284 MG, EVERY 6 MONTHS
     Route: 058
     Dates: start: 20230215

REACTIONS (5)
  - Diplegia [Recovering/Resolving]
  - Dyspnoea [Recovering/Resolving]
  - Balance disorder [Not Recovered/Not Resolved]
  - Injection site pain [Recovering/Resolving]
  - Muscular weakness [Unknown]

NARRATIVE: CASE EVENT DATE: 20230215
